FAERS Safety Report 4875377-3 (Version None)
Quarter: 2006Q1

REPORT INFORMATION
  Report Type: 
  Country: None (occurrence: None)
  Receive Date: 20060109
  Receipt Date: 20051202
  Transmission Date: 20060701
  Serious: Yes (Death)
  Sender: FDA-Public Use
  Company Number: US-MERCK-0512USA00522

PATIENT
  Age: 73 Year
  Sex: Male
  Weight: 91 kg

DRUGS (8)
  1. VIOXX [Suspect]
     Indication: SHOULDER PAIN
     Route: 048
     Dates: start: 20020101, end: 20021216
  2. VIOXX [Suspect]
     Indication: ARTHRALGIA
     Route: 048
     Dates: start: 20020101, end: 20021216
  3. LORTAB [Concomitant]
     Route: 065
  4. LIPITOR [Concomitant]
     Route: 065
  5. HYZAAR [Concomitant]
     Route: 065
  6. ASPIRIN [Concomitant]
     Route: 065
  7. AMIODARONE [Concomitant]
     Route: 065
  8. FLOMAX [Concomitant]
     Route: 065

REACTIONS (1)
  - MYOCARDIAL INFARCTION [None]
